FAERS Safety Report 9481929 (Version 2)
Quarter: 2013Q4

REPORT INFORMATION
  Report Type: Spontaneous
  Country: DE (occurrence: DE)
  Receive Date: 20130828
  Receipt Date: 20131105
  Transmission Date: 20140711
  Serious: Yes (Hospitalization)
  Sender: FDA-Public Use
  Company Number: DE-AMGEN-DEUSP2013060327

PATIENT
  Age: 31 Year
  Sex: Female

DRUGS (6)
  1. PEGFILGRASTIM [Suspect]
     Indication: BREAST CANCER
     Dosage: UNK
     Route: 065
  2. CYCLOPHOSPHAMIDE [Suspect]
     Indication: BREAST CANCER
     Dosage: 3080 MG, UNK
     Route: 065
     Dates: start: 20130730
  3. CYCLOPHOSPHAMIDE [Suspect]
     Dosage: 2300 MG, UNK
     Route: 065
     Dates: start: 20130813
  4. CIPROFLOXACIN [Suspect]
     Indication: BREAST CANCER
     Dosage: UNK
     Route: 065
  5. PACLITAXEL ALBUMIN [Suspect]
     Indication: BREAST CANCER
     Dosage: 515 MG, UNK
     Route: 065
     Dates: start: 20130618
  6. EPIRUBICIN /00699302/ [Suspect]
     Indication: BREAST CANCER
     Dosage: 240 MG, UNK
     Route: 065
     Dates: start: 20130507

REACTIONS (1)
  - Pancytopenia [Recovered/Resolved]
